FAERS Safety Report 5952207-X (Version None)
Quarter: 2008Q4

REPORT INFORMATION
  Report Type: 
  Country: None (occurrence: None)
  Receive Date: 20081113
  Receipt Date: 20081016
  Transmission Date: 20090506
  Serious: No
  Sender: FDA-Public Use
  Company Number: US-JNJFOC-20081004531

PATIENT
  Age: 23 Year
  Sex: Male
  Weight: 98.43 kg

DRUGS (5)
  1. INVEGA [Suspect]
     Dosage: HALF OF 6 MG TABLET
     Route: 048
  2. INVEGA [Suspect]
     Indication: DRUG THERAPY
     Route: 048
  3. LAMICTAL [Concomitant]
     Indication: BIPOLAR DISORDER
     Route: 048
  4. CLONAZEPAM [Concomitant]
     Indication: ANXIETY
     Route: 048
  5. VIAGRA [Concomitant]
     Indication: ERECTILE DYSFUNCTION
     Route: 048

REACTIONS (8)
  - ACTIVITIES OF DAILY LIVING IMPAIRED [None]
  - ANXIETY [None]
  - ERECTILE DYSFUNCTION [None]
  - HYPERHIDROSIS [None]
  - LIBIDO DECREASED [None]
  - SEDATION [None]
  - TACHYPHRENIA [None]
  - WRONG TECHNIQUE IN DRUG USAGE PROCESS [None]
